FAERS Safety Report 16569366 (Version 1)
Quarter: 2019Q3

REPORT INFORMATION
  Report Type: Spontaneous
  Country: US (occurrence: US)
  Receive Date: 20190715
  Receipt Date: 20190715
  Transmission Date: 20191004
  Serious: Yes (Other)
  Sender: FDA-Public Use
  Company Number: US-BION-007291

PATIENT
  Sex: Female

DRUGS (1)
  1. CALCITRIOL BANNER PHARMACEUTICALS [Suspect]
     Active Substance: CALCITRIOL
     Indication: PRODUCT USED FOR UNKNOWN INDICATION
     Dosage: STRENGTH: 0.5 MCG

REACTIONS (2)
  - Product substitution issue [Unknown]
  - Hypersensitivity [Unknown]
